FAERS Safety Report 14973226 (Version 1)
Quarter: 2018Q2

REPORT INFORMATION
  Report Type: Spontaneous
  Country: US (occurrence: US)
  Receive Date: 20180514
  Receipt Date: 20180514
  Transmission Date: 20180711
  Serious: Yes (Hospitalization)
  Sender: FDA-Public Use
  Company Number: None

PATIENT
  Age: 85 Year
  Sex: Female

DRUGS (1)
  1. EXTEMSTANE 25MG [Suspect]
     Active Substance: EXEMESTANE
     Indication: BREAST CANCER IN SITU
     Route: 048
     Dates: start: 20160901

REACTIONS (1)
  - Hospitalisation [None]
